FAERS Safety Report 5085326-3 (Version None)
Quarter: 2006Q3

REPORT INFORMATION
  Report Type: 
  Country: None (occurrence: None)
  Receive Date: 20060817
  Receipt Date: 20060808
  Transmission Date: 20061208
  Serious: Yes (Hospitalization, Other)
  Sender: FDA-Public Use
  Company Number: 2006041627

PATIENT
  Age: 74 Year
  Sex: Male
  Weight: 95.2554 kg

DRUGS (10)
  1. GEODON [Suspect]
     Indication: AGITATION
     Dosage: (2 IN 1 D)
  2. COREG [Concomitant]
  3. PRINIVIL [Concomitant]
  4. ASPIRIN [Concomitant]
  5. CORDARONE [Concomitant]
  6. PROTONIX [Concomitant]
  7. ZOFRAN [Concomitant]
  8. INSULIN [Concomitant]
  9. ATIVAN [Concomitant]
  10. ACETAMINOPHEN [Concomitant]

REACTIONS (4)
  - CARDIAC ARREST [None]
  - CEREBRAL DISORDER [None]
  - INCORRECT ROUTE OF DRUG ADMINISTRATION [None]
  - SEDATION [None]
